FAERS Safety Report 8450648-2 (Version None)
Quarter: 2012Q2

REPORT INFORMATION
  Report Type: 
  Country: None (occurrence: None)
  Receive Date: 20120620
  Receipt Date: 20120615
  Transmission Date: 20120825
  Serious: Yes (Life-Threatening, Other)
  Sender: FDA-Public Use
  Company Number: PHHY2012JP021771

PATIENT
  Sex: Male
  Weight: 70 kg

DRUGS (12)
  1. PREDNISOLONE [Concomitant]
     Dosage: 20 MG,
     Route: 042
  2. RASILEZ [Suspect]
     Indication: HYPERTENSION
     Dosage: 150 MG,
     Route: 048
     Dates: start: 20120309, end: 20120309
  3. KARMIPACK [Concomitant]
     Route: 042
  4. NORVASC [Concomitant]
     Route: 048
  5. ALDOMET [Concomitant]
     Route: 048
     Dates: end: 20120308
  6. TAMSULOSIN HCL [Concomitant]
     Dosage: 0.2 MG,
     Route: 048
  7. LEVOFLOXACIN [Concomitant]
     Dosage: 500 MG,
     Route: 042
  8. NICARDIPINE HCL [Concomitant]
     Route: 042
  9. ADRENAL HORMONE PREPARATIONS [Concomitant]
     Route: 048
  10. LASIX [Concomitant]
     Dosage: 40 MG,
     Route: 048
  11. FERROUS CITRATE [Concomitant]
     Dosage: 100 MG, UNK
     Route: 048
  12. OMEPRAZOLE [Concomitant]
     Dosage: 40 MG,
     Route: 042

REACTIONS (14)
  - COUGH [None]
  - ANGIOEDEMA [None]
  - PERIORBITAL OEDEMA [None]
  - GINGIVAL OEDEMA [None]
  - BLOOD LACTATE DEHYDROGENASE INCREASED [None]
  - ASPARTATE AMINOTRANSFERASE INCREASED [None]
  - OEDEMA PERIPHERAL [None]
  - DYSPNOEA [None]
  - PHARYNGEAL OEDEMA [None]
  - ALANINE AMINOTRANSFERASE INCREASED [None]
  - BLOOD GLUCOSE INCREASED [None]
  - HAEMOGLOBIN DECREASED [None]
  - LARYNGEAL OEDEMA [None]
  - FACE OEDEMA [None]
